APPROVED DRUG PRODUCT: PHENYLEPHRINE HYDROCHLORIDE
Active Ingredient: PHENYLEPHRINE HYDROCHLORIDE
Strength: 50MG/5ML (10MG/ML)
Dosage Form/Route: SOLUTION;INTRAVENOUS
Application: A210697 | Product #001 | TE Code: AP1
Applicant: EUGIA PHARMA SPECIALITIES LTD
Approved: Nov 13, 2020 | RLD: No | RS: No | Type: RX